FAERS Safety Report 9304718 (Version 1)
Quarter: 2013Q2

REPORT INFORMATION
  Report Type: Spontaneous
  Country: US (occurrence: US)
  Receive Date: 20130523
  Receipt Date: 20130523
  Transmission Date: 20140414
  Serious: No
  Sender: FDA-Public Use
  Company Number: US-BIOGENIDEC-2013BI045931

PATIENT
  Sex: Female

DRUGS (1)
  1. TYSABRI [Suspect]
     Indication: MULTIPLE SCLEROSIS
     Route: 042
     Dates: start: 20090305, end: 20090716

REACTIONS (3)
  - Rhinorrhoea [Not Recovered/Not Resolved]
  - Multiple allergies [Not Recovered/Not Resolved]
  - Pulmonary congestion [Not Recovered/Not Resolved]
